FAERS Safety Report 6926651-8 (Version None)
Quarter: 2010Q3

REPORT INFORMATION
  Report Type: 
  Country: None (occurrence: None)
  Receive Date: 20100816
  Receipt Date: 20100809
  Transmission Date: 20110219
  Serious: Yes (Death, Hospitalization, Other)
  Sender: FDA-Public Use
  Company Number: US-AMGEN-QUU403437

PATIENT
  Sex: Male

DRUGS (11)
  1. NPLATE [Suspect]
     Indication: IDIOPATHIC THROMBOCYTOPENIC PURPURA
     Route: 058
     Dates: start: 20081119
  2. IMMU-G [Concomitant]
     Route: 042
     Dates: start: 20080627
  3. ALBUTEROL SULATE [Concomitant]
  4. NEXIUM [Concomitant]
  5. CLARITIN [Concomitant]
  6. KLONOPIN [Concomitant]
  7. ZOCOR [Concomitant]
  8. AMBIEN [Concomitant]
  9. RESTORIL [Concomitant]
  10. CLARITIN [Concomitant]
  11. UNSPECIFIED MEDICATION [Concomitant]

REACTIONS (9)
  - ACUTE RESPIRATORY FAILURE [None]
  - ASTHENIA [None]
  - CARDIAC FAILURE CONGESTIVE [None]
  - CARDIOMYOPATHY [None]
  - HYPERCHOLESTEROLAEMIA [None]
  - LYMPHADENOPATHY MEDIASTINAL [None]
  - NASOPHARYNGITIS [None]
  - PRESYNCOPE [None]
  - PULMONARY EMBOLISM [None]
